FAERS Safety Report 5779266-1 (Version None)
Quarter: 2008Q2

REPORT INFORMATION
  Report Type: 
  Country: None (occurrence: None)
  Receive Date: 20080619
  Receipt Date: 20080612
  Transmission Date: 20081010
  Serious: Yes (Hospitalization)
  Sender: FDA-Public Use
  Company Number: US-JNJFOC-20061006824

PATIENT
  Sex: Male
  Weight: 97.52 kg

DRUGS (1)
  1. RISPERDAL [Suspect]
     Indication: DEPRESSION

REACTIONS (1)
  - SUICIDE ATTEMPT [None]
